FAERS Safety Report 5489258-8 (Version None)
Quarter: 2007Q4

REPORT INFORMATION
  Report Type: 
  Country: None (occurrence: None)
  Receive Date: 20071016
  Receipt Date: 20071008
  Transmission Date: 20080405
  Serious: Yes (Other)
  Sender: FDA-Public Use
  Company Number: 2007-03361

PATIENT
  Age: 73 Year
  Sex: Male

DRUGS (5)
  1. VELCADE [Suspect]
     Indication: MULTIPLE MYELOMA
  2. COUMADIN [Concomitant]
  3. WHEAT-GERM (WHEAT-GERM OIL) [Concomitant]
  4. IRON (IRON) [Concomitant]
  5. TIAZAC [Concomitant]

REACTIONS (4)
  - AORTIC STENOSIS [None]
  - CARDIAC FAILURE [None]
  - CONDITION AGGRAVATED [None]
  - PULMONARY HYPERTENSION [None]
